FAERS Safety Report 4594640-7 (Version None)
Quarter: 2005Q1

REPORT INFORMATION
  Report Type: 
  Country: None (occurrence: None)
  Receive Date: 20050301
  Receipt Date: 20041116
  Transmission Date: 20050727
  Serious: No
  Sender: FDA-Public Use
  Company Number: US-BRISTOL-MYERS SQUIBB COMPANY-12767224

PATIENT
  Sex: Male

DRUGS (2)
  1. ERBITUX [Suspect]
     Indication: COLORECTAL CANCER METASTATIC
     Route: 042
     Dates: start: 20041015, end: 20041015
  2. BENADRYL [Concomitant]
     Indication: PREMEDICATION
     Dates: start: 20041015, end: 20041015

REACTIONS (1)
  - INFUSION RELATED REACTION [None]
